FAERS Safety Report 5412584-5 (Version None)
Quarter: 2007Q3

REPORT INFORMATION
  Report Type: 
  Country: None (occurrence: None)
  Receive Date: 20070813
  Receipt Date: 20070809
  Transmission Date: 20080115
  Serious: Yes (Other)
  Sender: FDA-Public Use
  Company Number: US-BRISTOL-MYERS SQUIBB COMPANY-13556121

PATIENT
  Age: 77 Year
  Sex: Female
  Weight: 100 kg

DRUGS (6)
  1. ORENCIA [Suspect]
     Indication: RHEUMATOID ARTHRITIS
     Route: 042
     Dates: start: 20060915
  2. COZAAR [Concomitant]
  3. PREDNISONE TAB [Concomitant]
  4. PLAQUENIL [Concomitant]
  5. INSULIN [Concomitant]
  6. LASIX [Concomitant]

REACTIONS (7)
  - ASTHENIA [None]
  - CARDIAC FAILURE [None]
  - COUGH [None]
  - GENERALISED OEDEMA [None]
  - LUNG DISORDER [None]
  - MYALGIA [None]
  - PULMONARY HYPERTENSION [None]
